FAERS Safety Report 5168306-9 (Version None)
Quarter: 2006Q4

REPORT INFORMATION
  Report Type: 
  Country: None (occurrence: None)
  Receive Date: 20061208
  Receipt Date: 20061204
  Transmission Date: 20070319
  Serious: Yes (Other)
  Sender: FDA-Public Use
  Company Number: JP-BRISTOL-MYERS SQUIBB COMPANY-13600440

PATIENT
  Age: 9 Year
  Sex: Female

DRUGS (3)
  1. METHOTREXATE [Suspect]
     Indication: JUVENILE ARTHRITIS
  2. NAPROXEN [Concomitant]
     Indication: JUVENILE ARTHRITIS
  3. PREDNISONE TAB [Concomitant]
     Indication: JUVENILE ARTHRITIS

REACTIONS (3)
  - EPSTEIN-BARR VIRUS INFECTION [None]
  - HODGKIN'S DISEASE [None]
  - LYMPHOPROLIFERATIVE DISORDER [None]
